FAERS Safety Report 22378832 (Version 1)
Quarter: 2023Q2

REPORT INFORMATION
  Report Type: Spontaneous
  Country: GB (occurrence: GB)
  Receive Date: 20230529
  Receipt Date: 20230529
  Transmission Date: 20230722
  Serious: Yes (Death, Life-Threatening, Other)
  Sender: FDA-Public Use
  Company Number: None

PATIENT
  Age: 71 Year
  Sex: Male
  Weight: 84 kg

DRUGS (13)
  1. CARBOPLATIN [Suspect]
     Active Substance: CARBOPLATIN
     Indication: Lung adenocarcinoma
     Dosage: PEMETREXED (C1-7) + CARBOPLATIN (C1-4)
     Dates: end: 20190715
  2. PEMETREXED [Suspect]
     Active Substance: PEMETREXED
     Indication: Lung adenocarcinoma
     Dosage: PEMETREXED (C1-7) + CARBOPLATIN (C1-4)
     Dates: end: 20190715
  3. PEMBROLIZUMAB [Suspect]
     Active Substance: PEMBROLIZUMAB
     Indication: Lung adenocarcinoma
     Dosage: 200 MG, Q3/ Q 21 DAYS
     Route: 042
     Dates: start: 20190201, end: 20190625
  4. VORICONAZOLE [Concomitant]
     Active Substance: VORICONAZOLE
     Route: 042
  5. ZINC [Concomitant]
     Active Substance: ZINC
  6. ASPIRIN [Concomitant]
     Active Substance: ASPIRIN
     Dosage: 75 MG, ONCE A DAY (OD)
  7. ATORVASTATIN [Concomitant]
     Active Substance: ATORVASTATIN
  8. CETIRIZINE [Concomitant]
     Active Substance: CETIRIZINE HYDROCHLORIDE
  9. LOSARTAN [Concomitant]
     Active Substance: LOSARTAN
  10. VALACYCLOVIR HYDROCHLORIDE [Concomitant]
     Active Substance: VALACYCLOVIR HYDROCHLORIDE
     Indication: Herpes zoster
     Dosage: 500 MG, BID
     Route: 048
     Dates: start: 20190603, end: 20190625
  11. CARBOPLATIN [Suspect]
     Active Substance: CARBOPLATIN
     Indication: Metastases to bone
  12. PEMETREXED [Suspect]
     Active Substance: PEMETREXED
     Indication: Metastases to bone
  13. PEMBROLIZUMAB [Suspect]
     Active Substance: PEMBROLIZUMAB
     Indication: Metastases to bone

REACTIONS (2)
  - Hypersensitivity pneumonitis [Fatal]
  - Immune-mediated lung disease [Fatal]

NARRATIVE: CASE EVENT DATE: 20190101
